FAERS Safety Report 18766575 (Version 4)
Quarter: 2021Q1

REPORT INFORMATION
  Report Type: Spontaneous
  Country: US (occurrence: US)
  Receive Date: 20210121
  Receipt Date: 20210223
  Transmission Date: 20210419
  Serious: Yes (Other)
  Sender: FDA-Public Use
  Company Number: US-DRREDDYS-USA/USA/21/0131225

PATIENT
  Age: 8 Year
  Sex: Male

DRUGS (14)
  1. RISPERIDONE. [Suspect]
     Active Substance: RISPERIDONE
     Indication: ATTENTION DEFICIT HYPERACTIVITY DISORDER
  2. GUANFACINE. [Suspect]
     Active Substance: GUANFACINE
     Indication: ATTENTION DEFICIT HYPERACTIVITY DISORDER
  3. GUANFACINE. [Suspect]
     Active Substance: GUANFACINE
     Indication: ATTENTION DEFICIT HYPERACTIVITY DISORDER
  4. CLONIDINE. [Concomitant]
     Active Substance: CLONIDINE
     Indication: ANXIETY
  5. CLONIDINE. [Concomitant]
     Active Substance: CLONIDINE
     Indication: TIC
  6. ASPIRIN. [Concomitant]
     Active Substance: ASPIRIN
     Indication: CEREBRAL INFARCTION
  7. METHYLPHENIDATE. [Concomitant]
     Active Substance: METHYLPHENIDATE
     Indication: PRODUCT USED FOR UNKNOWN INDICATION
  8. FOLIC ACID. [Concomitant]
     Active Substance: FOLIC ACID
     Indication: PRODUCT USED FOR UNKNOWN INDICATION
  9. ACETYLSALICYLIC ACID [Concomitant]
     Active Substance: ASPIRIN
     Indication: CEREBRAL INFARCTION
  10. ATOMOXETINE CAPSULES USP [Suspect]
     Active Substance: ATOMOXETINE
     Indication: ATTENTION DEFICIT HYPERACTIVITY DISORDER
     Dosage: LOWER DOSE
  11. AMPHETAMINE SULFATE. [Concomitant]
     Active Substance: AMPHETAMINE SULFATE
     Indication: ATTENTION DEFICIT HYPERACTIVITY DISORDER
  12. HYDROXYZINE HYDROCHLORIDE. [Concomitant]
     Active Substance: HYDROXYZINE HYDROCHLORIDE
     Indication: ANXIETY
  13. IRON [Concomitant]
     Active Substance: IRON
     Indication: PRODUCT USED FOR UNKNOWN INDICATION
  14. CYPROHEPTADINE. [Concomitant]
     Active Substance: CYPROHEPTADINE
     Indication: DECREASED APPETITE

REACTIONS (4)
  - Aggression [Unknown]
  - Sedation [Unknown]
  - Suicidal ideation [Unknown]
  - Weight increased [Unknown]
